FAERS Safety Report 5455721-9 (Version None)
Quarter: 2007Q3

REPORT INFORMATION
  Report Type: 
  Country: None (occurrence: None)
  Receive Date: 20070914
  Receipt Date: 20070905
  Transmission Date: 20080115
  Serious: Yes (Other)
  Sender: FDA-Public Use
  Company Number: 2007SP003104

PATIENT
  Age: 73 Year
  Sex: Female

DRUGS (9)
  1. LUNESTA [Suspect]
     Indication: INSOMNIA
     Dosage: ORAL
     Route: 048
  2. NAMENDA [Suspect]
     Indication: DEMENTIA
     Dosage: 5 MG; BID; ORAL;  5 MG; QD; ORAL
     Route: 048
     Dates: start: 20070807, end: 20070811
  3. NAMENDA [Suspect]
     Indication: DEMENTIA
     Dosage: 5 MG; BID; ORAL;  5 MG; QD; ORAL
     Route: 048
     Dates: start: 20070816
  4. ATIVAN [Concomitant]
  5. SEROQUEL [Concomitant]
  6. SINEMET [Concomitant]
  7. REQUIP [Concomitant]
  8. ENTACAPONE [Concomitant]
  9. STALEVO 100 [Concomitant]

REACTIONS (4)
  - AGGRESSION [None]
  - DRUG INTERACTION [None]
  - NIGHTMARE [None]
  - STRANGULATED HERNIA REPAIR [None]
